FAERS Safety Report 8205158-4 (Version None)
Quarter: 2012Q1

REPORT INFORMATION
  Report Type: 
  Country: None (occurrence: None)
  Receive Date: 20120313
  Receipt Date: 20120307
  Transmission Date: 20120608
  Serious: Yes (Death)
  Sender: FDA-Public Use
  Company Number: NL-GLAXOSMITHKLINE-B0787861A

PATIENT
  Sex: Male

DRUGS (2)
  1. MADOPAR [Suspect]
     Indication: PARKINSON'S DISEASE
     Dosage: 187.5MG FOUR TIMES PER DAY
     Route: 048
     Dates: start: 20090310
  2. REQUIP [Suspect]
     Indication: PARKINSON'S DISEASE
     Dosage: 4MG PER DAY
     Route: 048
     Dates: start: 20111003

REACTIONS (1)
  - COMPLETED SUICIDE [None]
